FAERS Safety Report 13191873 (Version 1)
Quarter: 2017Q1

REPORT INFORMATION
  Report Type: Spontaneous
  Country: NO (occurrence: NO)
  Receive Date: 20170207
  Receipt Date: 20170207
  Transmission Date: 20170428
  Serious: Yes (Other)
  Sender: FDA-Public Use
  Company Number: NO-ROCHE-1888088

PATIENT
  Sex: Female

DRUGS (1)
  1. RIVOTRIL [Suspect]
     Active Substance: CLONAZEPAM
     Indication: EPILEPSY
     Route: 065

REACTIONS (12)
  - Abnormal behaviour [Unknown]
  - Depression [Unknown]
  - Hyposmia [Recovered/Resolved]
  - Memory impairment [Recovering/Resolving]
  - Hypogeusia [Recovered/Resolved]
  - Feeling abnormal [Unknown]
  - Dependence [Unknown]
  - Crying [Unknown]
  - Overdose [Unknown]
  - Asthenia [Recovering/Resolving]
  - Hypoacusis [Recovered/Resolved]
  - Affect lability [Recovering/Resolving]
